FAERS Safety Report 16713397 (Version 1)
Quarter: 2019Q3

REPORT INFORMATION
  Report Type: Spontaneous
  Country: GB (occurrence: GB)
  Receive Date: 20190818
  Receipt Date: 20190818
  Transmission Date: 20191004
  Serious: Yes (Life-Threatening, Hospitalization, Other)
  Sender: FDA-Public Use
  Company Number: GB-BRISTOL-MYERS SQUIBB COMPANY-BMS-2019-079687

PATIENT
  Age: 74 Year
  Sex: Male
  Weight: 104.2 kg

DRUGS (1)
  1. APIXABAN [Suspect]
     Active Substance: APIXABAN
     Indication: CEREBROVASCULAR ACCIDENT PROPHYLAXIS
     Dosage: 10 MILLIGRAM, QD
     Route: 048
     Dates: start: 20180222, end: 20190701

REACTIONS (3)
  - Pulmonary embolism [Not Recovered/Not Resolved]
  - Treatment failure [Not Recovered/Not Resolved]
  - Pleuritic pain [Not Recovered/Not Resolved]

NARRATIVE: CASE EVENT DATE: 20190701
